FAERS Safety Report 7161262-3 (Version None)
Quarter: 2010Q4

REPORT INFORMATION
  Report Type: 
  Country: None (occurrence: None)
  Receive Date: 20101210
  Receipt Date: 20101210
  Transmission Date: 20110411
  Serious: Yes (Other)
  Sender: FDA-Public Use
  Company Number: None

PATIENT
  Age: 46 Year
  Sex: Female
  Weight: 61.2356 kg

DRUGS (2)
  1. CIPROFLAXACIN [Suspect]
     Indication: KIDNEY INFECTION
     Dosage: 500 MG 2X/DAY PO
     Route: 048
     Dates: start: 20100713, end: 20100720
  2. CIPROFLAXACIN [Suspect]
     Indication: KIDNEY INFECTION
     Dosage: 250 MG 2X/DAY PO
     Route: 048
     Dates: start: 20100721, end: 20100722

REACTIONS (22)
  - ASTHENIA [None]
  - BURNING SENSATION [None]
  - DIZZINESS [None]
  - EXERCISE TOLERANCE DECREASED [None]
  - FATIGUE [None]
  - FEELING ABNORMAL [None]
  - HYPOAESTHESIA [None]
  - IMPAIRED WORK ABILITY [None]
  - MENOPAUSE [None]
  - MIDDLE INSOMNIA [None]
  - MUSCLE SPASMS [None]
  - MUSCLE TIGHTNESS [None]
  - MUSCLE TWITCHING [None]
  - MUSCULAR WEAKNESS [None]
  - PALPITATIONS [None]
  - PANIC ATTACK [None]
  - PARAESTHESIA [None]
  - PRESYNCOPE [None]
  - SERUM FERRITIN DECREASED [None]
  - STRESS [None]
  - TACHYCARDIA [None]
  - VERTIGO [None]
